FAERS Safety Report 19075529 (Version 1)
Quarter: 2021Q1

REPORT INFORMATION
  Report Type: Spontaneous
  Country: IN (occurrence: IN)
  Receive Date: 20210330
  Receipt Date: 20210330
  Transmission Date: 20210420
  Serious: Yes (Hospitalization)
  Sender: FDA-Public Use
  Company Number: IN-PRINSTON PHARMACEUTICAL INC.-2021PRN00113

PATIENT
  Sex: Male

DRUGS (2)
  1. TRIHEXYPHENIDYL [Concomitant]
     Active Substance: TRIHEXYPHENIDYL
     Indication: PSYCHOTIC SYMPTOM
     Dosage: 2 MG, 1X/DAY
     Route: 065
  2. RISPERIDONE. [Suspect]
     Active Substance: RISPERIDONE
     Indication: SCHIZOPHRENIA
     Dosage: 2 MG, 1X/DAY
     Route: 065

REACTIONS (1)
  - Deep vein thrombosis [Recovered/Resolved]
